FAERS Safety Report 21775940 (Version 1)
Quarter: 2022Q4

REPORT INFORMATION
  Report Type: Spontaneous
  Country: US (occurrence: US)
  Receive Date: 20221226
  Receipt Date: 20221226
  Transmission Date: 20230113
  Serious: No
  Sender: FDA-Public Use
  Company Number: US-Accord-276025

PATIENT
  Sex: Female

DRUGS (1)
  1. BUPROPION HYDROCHLORIDE [Suspect]
     Active Substance: BUPROPION HYDROCHLORIDE
     Indication: Product used for unknown indication
     Dosage: DAILY

REACTIONS (6)
  - Nausea [Unknown]
  - Agitation [Unknown]
  - Palpitations [Unknown]
  - Decreased appetite [Unknown]
  - Feeling abnormal [Unknown]
  - Product odour abnormal [Unknown]
